FAERS Safety Report 5656454-6 (Version None)
Quarter: 2008Q1

REPORT INFORMATION
  Report Type: 
  Country: None (occurrence: None)
  Receive Date: 20080309
  Receipt Date: 20080108
  Transmission Date: 20080703
  Serious: No
  Sender: FDA-Public Use
  Company Number: US-BAYER-200810186BCC

PATIENT
  Age: 51 Year
  Sex: Female
  Weight: 73 kg

DRUGS (4)
  1. ALEVE [Suspect]
     Indication: ARTHRALGIA
     Dosage: AS USED: 220 MG  UNIT DOSE: 220 MG
     Route: 048
     Dates: start: 20080107
  2. SUPER B COMPLEX [Concomitant]
  3. VITAMIN B [Concomitant]
  4. STORE BRAND CALCIUM [Concomitant]

REACTIONS (1)
  - ARTHRALGIA [None]
